FAERS Safety Report 6653802-5 (Version None)
Quarter: 2010Q1

REPORT INFORMATION
  Report Type: 
  Country: None (occurrence: None)
  Receive Date: 20100326
  Receipt Date: 20100323
  Transmission Date: 20100710
  Serious: Yes (Hospitalization)
  Sender: FDA-Public Use
  Company Number: A0851878A

PATIENT
  Age: 60 Year
  Sex: Female

DRUGS (1)
  1. LAMICTAL CD [Suspect]
     Dosage: 25MG UNKNOWN
     Route: 065

REACTIONS (1)
  - STEVENS-JOHNSON SYNDROME [None]
